FAERS Safety Report 24637530 (Version 1)
Quarter: 2024Q4

REPORT INFORMATION
  Report Type: Spontaneous
  Country: NL (occurrence: NL)
  Receive Date: 20241119
  Receipt Date: 20241119
  Transmission Date: 20250115
  Serious: Yes (Disabling)
  Sender: FRESENIUS KABI
  Company Number: None

PATIENT
  Age: 61 Year
  Sex: Female
  Weight: 86 kg

DRUGS (7)
  1. PIPERACILLIN AND TAZOBACTAM [Suspect]
     Active Substance: PIPERACILLIN SODIUM\TAZOBACTAM SODIUM
     Indication: Vulval abscess
     Dosage: 3 X 1?FORM OF ADMIN: INFUSION
     Dates: start: 20231211, end: 20231217
  2. CIPROFLOXACIN [Suspect]
     Active Substance: CIPROFLOXACIN
     Indication: Vulval abscess
     Dosage: 2 X 1?FOA-TABLET
     Route: 048
     Dates: start: 20231217, end: 20240117
  3. CLINDAMYCIN HYDROCHLORIDE [Suspect]
     Active Substance: CLINDAMYCIN HYDROCHLORIDE
     Indication: Vulval abscess
     Dosage: FOA-CAPSULE, 300 MG (MILLIGRAM)
     Route: 048
     Dates: start: 20231217, end: 20240117
  4. METFORMIN HYDROCHLORIDE [Concomitant]
     Active Substance: METFORMIN HYDROCHLORIDE
     Indication: Product used for unknown indication
  5. GLICLAZIDE TABLET MGA 80MG / Brand name not specified [Concomitant]
     Indication: Product used for unknown indication
  6. SEMAGLUTIDE TABLET 3MG / RYBELSUS TABLET 3MG [Concomitant]
     Indication: Product used for unknown indication
  7. TIMOLOL/DORZOLAMIDE EYE DROPS 5/20MG/ML / COSOPT EYE DROPS FLACON 5ML [Concomitant]
     Indication: Product used for unknown indication

REACTIONS (2)
  - Optic neuropathy [Not Recovered/Not Resolved]
  - Angle closure glaucoma [Not Recovered/Not Resolved]
